FAERS Safety Report 18518956 (Version 1)
Quarter: 2020Q4

REPORT INFORMATION
  Report Type: Spontaneous
  Country: US (occurrence: US)
  Receive Date: 20201118
  Receipt Date: 20201118
  Transmission Date: 20210114
  Serious: No
  Sender: FDA-Public Use
  Company Number: US-IMMUNOMEDICS, INC.-2020IMMU000566

PATIENT

DRUGS (1)
  1. TRODELVY [Suspect]
     Active Substance: SACITUZUMAB GOVITECAN-HZIY
     Indication: PRODUCT USED FOR UNKNOWN INDICATION
     Dosage: 630 MG; CYCLE 1, DAY 8
     Route: 042
     Dates: start: 20200825, end: 20200825

REACTIONS (5)
  - Abdominal pain [Unknown]
  - Fatigue [Unknown]
  - Hyperhidrosis [Unknown]
  - Drug intolerance [Unknown]
  - Cold sweat [Unknown]

NARRATIVE: CASE EVENT DATE: 20200825
